FAERS Safety Report 5799257-4 (Version None)
Quarter: 2008Q3

REPORT INFORMATION
  Report Type: 
  Country: None (occurrence: None)
  Receive Date: 20080701
  Receipt Date: 20080623
  Transmission Date: 20090109
  Serious: Yes (Other)
  Sender: FDA-Public Use
  Company Number: 2008016557

PATIENT
  Age: 53 Year
  Sex: Female
  Weight: 48.5349 kg

DRUGS (1)
  1. LISTERINE WHITENING QUICK DISSOLVING STRIPS (NO ACTIVE INGREDIENT) [Suspect]
     Indication: DENTAL CARE
     Dosage: 4 STRIPS 1 TIME A DAY (1 IN 1 D),ORAL
     Route: 048
     Dates: start: 20080620, end: 20080620

REACTIONS (7)
  - APPLICATION SITE BURN [None]
  - CHEILITIS [None]
  - INAPPROPRIATE SCHEDULE OF DRUG ADMINISTRATION [None]
  - LIP SWELLING [None]
  - OEDEMA MOUTH [None]
  - ORAL DISCOMFORT [None]
  - SPEECH DISORDER [None]
